FAERS Safety Report 6428013-9 (Version None)
Quarter: 2009Q4

REPORT INFORMATION
  Report Type: 
  Country: None (occurrence: None)
  Receive Date: 20091105
  Receipt Date: 20091102
  Transmission Date: 20100525
  Serious: Yes (Death)
  Sender: FDA-Public Use
  Company Number: GR-ASTRAZENECA-2009SE23926

PATIENT
  Age: 51 Year
  Sex: Female

DRUGS (3)
  1. SEROQUEL [Suspect]
     Indication: PSYCHOTIC DISORDER
     Route: 048
     Dates: end: 20091025
  2. SEROQUEL [Suspect]
     Route: 048
     Dates: start: 20091025, end: 20091027
  3. SEROQUEL [Suspect]
     Route: 048
     Dates: start: 20091027

REACTIONS (2)
  - DEATH [None]
  - FALL [None]
